FAERS Safety Report 7485835-3 (Version None)
Quarter: 2011Q2

REPORT INFORMATION
  Report Type: 
  Country: None (occurrence: None)
  Receive Date: 20110517
  Receipt Date: 20110513
  Transmission Date: 20111010
  Serious: Yes (Hospitalization, Other)
  Sender: FDA-Public Use
  Company Number: JP-PFIZER INC-2009177946

PATIENT
  Age: 68 Year
  Sex: Male
  Weight: 63 kg

DRUGS (6)
  1. DOXAZOSIN MESYLATE [Suspect]
     Dosage: 2 MG, 1X/DAY
     Dates: start: 20070801, end: 20090311
  2. MICARDIS [Suspect]
     Dosage: 40 MG, 1X/DAY
     Route: 048
     Dates: start: 20070801
  3. ANAFRANIL [Suspect]
     Dosage: 10 MG, 1X/DAY
     Route: 048
  4. ATELEC [Suspect]
     Dosage: 10 MG, 1X/DAY
     Route: 048
     Dates: start: 20070201
  5. CIMETIDINE [Suspect]
     Dosage: UNK
     Route: 048
     Dates: end: 20090216
  6. TAMIFLU [Suspect]
     Indication: INFLUENZA
     Dosage: UNK
     Route: 048
     Dates: start: 20090131

REACTIONS (12)
  - LUNG DISORDER [None]
  - CYTOMEGALOVIRUS TEST POSITIVE [None]
  - INTERLEUKIN-2 RECEPTOR INCREASED [None]
  - CARBOHYDRATE ANTIGEN 19-9 [None]
  - RHEUMATOID FACTOR INCREASED [None]
  - EPSTEIN-BARR VIRUS ANTIBODY POSITIVE [None]
  - BLOOD LACTATE DEHYDROGENASE INCREASED [None]
  - ANTINEUTROPHIL CYTOPLASMIC ANTIBODY INCREASED [None]
  - INTERSTITIAL LUNG DISEASE [None]
  - ANTINUCLEAR ANTIBODY INCREASED [None]
  - CARCINOEMBRYONIC ANTIGEN INCREASED [None]
  - LYMPHOCYTE STIMULATION TEST POSITIVE [None]
